FAERS Safety Report 18504642 (Version 2)
Quarter: 2021Q2

REPORT INFORMATION
  Report Type: Spontaneous
  Country: CA (occurrence: CA)
  Receive Date: 20201115
  Receipt Date: 20210430
  Transmission Date: 20210717
  Serious: Yes (Other)
  Sender: FDA-Public Use
  Company Number: CA-SAMSUNG BIOEPIS-SB-2020-34118

PATIENT
  Age: 24 Year
  Sex: Female
  Weight: 75 kg

DRUGS (5)
  1. METHOTREXATE. [Concomitant]
     Active Substance: METHOTREXATE
     Indication: PRODUCT USED FOR UNKNOWN INDICATION
     Route: 048
  2. HYDROCORTISONE. [Concomitant]
     Active Substance: HYDROCORTISONE
     Indication: PREMEDICATION
     Route: 042
  3. ACETAMINOPHEN. [Concomitant]
     Active Substance: ACETAMINOPHEN
     Indication: PREMEDICATION
     Route: 048
  4. DIPHENHYDRAMINE. [Concomitant]
     Active Substance: DIPHENHYDRAMINE
     Indication: PREMEDICATION
     Route: 048
  5. INFLIXIMAB [Suspect]
     Active Substance: INFLIXIMAB
     Indication: CROHN^S DISEASE
     Route: 042

REACTIONS (13)
  - Blood pressure diastolic increased [Unknown]
  - Blood pressure increased [Unknown]
  - Arthralgia [Unknown]
  - Heart rate decreased [Unknown]
  - Body temperature increased [Unknown]
  - Malaise [Unknown]
  - Body temperature decreased [Unknown]
  - Abdominal pain [Unknown]
  - Infusion related reaction [Unknown]
  - Intentional product use issue [Unknown]
  - Heart rate increased [Unknown]
  - Off label use [Unknown]
  - Dizziness [Unknown]
